FAERS Safety Report 25732014 (Version 1)
Quarter: 2025Q3

REPORT INFORMATION
  Report Type: Report from Study
  Country: JP (occurrence: JP)
  Receive Date: 20250827
  Receipt Date: 20250827
  Transmission Date: 20251021
  Serious: Yes (Other)
  Sender: UCB
  Company Number: JP-UCBJ-CD202503865UCBPHAPROD

PATIENT
  Age: 37 Year
  Sex: Female
  Weight: 161 kg

DRUGS (10)
  1. ZILUCOPLAN [Suspect]
     Active Substance: ZILUCOPLAN
     Indication: Myasthenia gravis
     Route: 058
     Dates: start: 20250109, end: 20250306
  2. EFGARTIGIMOD ALFA(GENETICAL RECOMBINATION) [Concomitant]
     Indication: Myasthenia gravis
     Dates: end: 20241128
  3. EFGARTIGIMOD ALFA(GENETICAL RECOMBINATION) [Concomitant]
     Dosage: 5.6 MILLIGRAM, WEEKLY (QW)
     Dates: start: 20250314
  4. PREDNISOLONE [Concomitant]
     Active Substance: PREDNISOLONE
     Indication: Myasthenia gravis
     Route: 048
  5. PROGRAF [Concomitant]
     Active Substance: TACROLIMUS
     Indication: Myasthenia gravis
     Route: 048
  6. MESTINON [Concomitant]
     Active Substance: PYRIDOSTIGMINE BROMIDE
     Indication: Myasthenia gravis
     Route: 048
  7. NEXIUM [Concomitant]
     Active Substance: ESOMEPRAZOLE MAGNESIUM
     Indication: Prophylaxis
     Route: 048
  8. SULFAMETHOXAZOLE\TRIMETHOPRIM [Concomitant]
     Active Substance: SULFAMETHOXAZOLE\TRIMETHOPRIM
     Indication: Prophylaxis
     Route: 048
  9. ALENDRONATE [Concomitant]
     Active Substance: ALENDRONATE SODIUM
     Indication: Prophylaxis
     Route: 048
  10. BELSOMRA [Concomitant]
     Active Substance: SUVOREXANT
     Indication: Prophylaxis
     Route: 048

REACTIONS (2)
  - Myasthenia gravis [Recovered/Resolved]
  - Drug ineffective [Unknown]

NARRATIVE: CASE EVENT DATE: 20250101
